FAERS Safety Report 23073741 (Version 1)
Quarter: 2023Q4

REPORT INFORMATION
  Report Type: Spontaneous
  Country: US (occurrence: None)
  Receive Date: 20231016
  Receipt Date: 20231016
  Transmission Date: 20240109
  Serious: No
  Sender: FDA-Public Use
  Company Number: None

PATIENT
  Sex: Male

DRUGS (7)
  1. ABIRATERONE ACETATE [Suspect]
     Active Substance: ABIRATERONE ACETATE
     Indication: Prostate cancer
     Dosage: TAKE 4 TABLETS BY MOUTH EVERY DAY ON EMPTY STOMACH. NO FOOD 2 HOURS PRIOR OR 1 HOUR AFTER,?SWALLOW W
     Route: 048
     Dates: start: 20230925
  2. HYDROCHLOROT TAB 25MG [Concomitant]
  3. ITRACONAZOLE SOL 100/10ML [Concomitant]
  4. LUPRON DEPOT [Concomitant]
     Active Substance: LEUPROLIDE ACETATE
  5. METOPROL TAR TAB 25MG [Concomitant]
  6. NIFEDIPINE TAB 30MG ER [Concomitant]
  7. PREDNISONE [Concomitant]
     Active Substance: PREDNISONE

REACTIONS (1)
  - COVID-19 pneumonia [None]
